FAERS Safety Report 6982342-9 (Version None)
Quarter: 2010Q3

REPORT INFORMATION
  Report Type: 
  Country: None (occurrence: None)
  Receive Date: 20100914
  Receipt Date: 20091218
  Transmission Date: 20110219
  Serious: No
  Sender: FDA-Public Use
  Company Number: US-PFIZER INC-2009312523

PATIENT
  Sex: Male
  Weight: 82.6 kg

DRUGS (7)
  1. LYRICA [Suspect]
     Indication: NERVE INJURY
     Dosage: 50 MG, 2X/DAY
     Dates: start: 20091216
  2. CYMBALTA [Concomitant]
     Dosage: UNK
  3. XANAX [Concomitant]
     Dosage: UNK
  4. TIZANIDINE HCL [Concomitant]
     Dosage: UNK
  5. REQUIP [Concomitant]
     Indication: MUSCLE SPASMS
     Dosage: UNK
  6. REQUIP [Concomitant]
     Indication: RESTLESS LEGS SYNDROME
  7. CLONAZEPAM [Concomitant]
     Indication: SLEEP DISORDER
     Dosage: UNK

REACTIONS (6)
  - DIZZINESS [None]
  - DRY MOUTH [None]
  - FEELING ABNORMAL [None]
  - MALAISE [None]
  - POOR QUALITY SLEEP [None]
  - SOMNOLENCE [None]
